FAERS Safety Report 6028555-4 (Version None)
Quarter: 2009Q1

REPORT INFORMATION
  Report Type: 
  Country: None (occurrence: None)
  Receive Date: 20090106
  Receipt Date: 20081230
  Transmission Date: 20090719
  Serious: Yes (Disabling)
  Sender: FDA-Public Use
  Company Number: US-ELI_LILLY_AND_COMPANY-US200812005498

PATIENT
  Sex: Male

DRUGS (2)
  1. HUMALOG [Suspect]
     Dosage: 50 U, UNK
  2. HUMALOG [Suspect]
     Dosage: 60 U, UNK

REACTIONS (4)
  - FALL [None]
  - HIP FRACTURE [None]
  - MOTOR DYSFUNCTION [None]
  - PAIN IN EXTREMITY [None]
